FAERS Safety Report 9479038 (Version 1)
Quarter: 2013Q3

REPORT INFORMATION
  Report Type: Spontaneous
  Country: NL (occurrence: NL)
  Receive Date: 20130827
  Receipt Date: 20130827
  Transmission Date: 20140515
  Serious: Yes (Other)
  Sender: FDA-Public Use
  Company Number: NL-TEVA-427993ISR

PATIENT
  Age: 75 Year
  Sex: Male

DRUGS (2)
  1. AMLODIPINE [Suspect]
     Indication: HYPERTENSION
  2. ENALAPRILMALEAAT 20 PCH [Concomitant]
     Indication: HYPERTENSION

REACTIONS (2)
  - Renal impairment [Not Recovered/Not Resolved]
  - Flank pain [Not Recovered/Not Resolved]
